FAERS Safety Report 18569732 (Version 3)
Quarter: 2021Q1

REPORT INFORMATION
  Report Type: Report from Study
  Country: US (occurrence: US)
  Receive Date: 20201202
  Receipt Date: 20210209
  Transmission Date: 20210419
  Serious: Yes (Hospitalization)
  Sender: FDA-Public Use
  Company Number: US-BAUSCH-BL-2020-035097

PATIENT
  Age: 70 Year
  Sex: Male

DRUGS (2)
  1. XIFAXAN [Suspect]
     Active Substance: RIFAXIMIN
     Indication: HEPATIC ENCEPHALOPATHY
     Route: 048
     Dates: start: 2019, end: 20201123
  2. XIFAXAN [Suspect]
     Active Substance: RIFAXIMIN
     Route: 048

REACTIONS (6)
  - Inability to afford medication [Unknown]
  - Therapy interrupted [Unknown]
  - Confusional state [Unknown]
  - Insurance issue [Unknown]
  - Hospitalisation [Unknown]
  - Dysarthria [Unknown]

NARRATIVE: CASE EVENT DATE: 2020
